FAERS Safety Report 13383035 (Version 4)
Quarter: 2017Q4

REPORT INFORMATION
  Report Type: Report from Study
  Country: US (occurrence: US)
  Receive Date: 20170329
  Receipt Date: 20171117
  Transmission Date: 20180320
  Serious: Yes (Other)
  Sender: FDA-Public Use
  Company Number: US-AMGEN-USASL2017046962

PATIENT
  Age: 65 Year
  Sex: Female

DRUGS (1)
  1. NPLATE [Suspect]
     Active Substance: ROMIPLOSTIM
     Indication: IMMUNE THROMBOCYTOPENIC PURPURA
     Dosage: 250 MCG, UNK
     Route: 065
     Dates: start: 2015

REACTIONS (8)
  - Ephelides [Unknown]
  - Headache [Not Recovered/Not Resolved]
  - Platelet count decreased [Unknown]
  - Rash papular [Unknown]
  - Contusion [Unknown]
  - Pain [Unknown]
  - Fatigue [Unknown]
  - Angina bullosa haemorrhagica [Unknown]
